FAERS Safety Report 7213616-4 (Version None)
Quarter: 2011Q1

REPORT INFORMATION
  Report Type: 
  Country: None (occurrence: None)
  Receive Date: 20110106
  Receipt Date: 20101228
  Transmission Date: 20110831
  Serious: Yes (Other)
  Sender: FDA-Public Use
  Company Number: CHPA2010US19596

PATIENT
  Age: 76 Year
  Sex: Female
  Weight: 73.469 kg

DRUGS (1)
  1. VOLTAREN [Suspect]
     Indication: PAIN IN EXTREMITY
     Dosage: UNK, UNK
     Route: 061
     Dates: start: 20101201, end: 20101201

REACTIONS (8)
  - FEELING HOT [None]
  - RASH PRURITIC [None]
  - BURNING SENSATION [None]
  - PRURITUS [None]
  - NODULE [None]
  - THERAPEUTIC RESPONSE UNEXPECTED [None]
  - WRONG TECHNIQUE IN DRUG USAGE PROCESS [None]
  - OFF LABEL USE [None]
